FAERS Safety Report 24863991 (Version 1)
Quarter: 2025Q1

REPORT INFORMATION
  Report Type: Report from Study
  Country: CN (occurrence: CN)
  Receive Date: 20250120
  Receipt Date: 20250120
  Transmission Date: 20250409
  Serious: Yes (Hospitalization, Other)
  Sender: PFIZER
  Company Number: CN-TAKEDA-2022TUS083582

PATIENT
  Age: 62 Year
  Sex: Female
  Weight: 72 kg

DRUGS (23)
  1. ADCETRIS [Suspect]
     Active Substance: BRENTUXIMAB VEDOTIN
     Indication: Angioimmunoblastic T-cell lymphoma
     Dosage: 100 MILLIGRAM, Q3WEEKS
     Route: 041
     Dates: start: 20220915
  2. EPIRUBICIN HYDROCHLORIDE [Suspect]
     Active Substance: EPIRUBICIN HYDROCHLORIDE
     Indication: Angioimmunoblastic T-cell lymphoma
     Dosage: 100 MILLIGRAM, QD
     Route: 042
     Dates: start: 20220915, end: 20220915
  3. EPIRUBICIN HYDROCHLORIDE [Suspect]
     Active Substance: EPIRUBICIN HYDROCHLORIDE
     Dosage: 100 MILLIGRAM, QD
     Route: 042
     Dates: start: 20221109, end: 20221109
  4. EPIRUBICIN HYDROCHLORIDE [Suspect]
     Active Substance: EPIRUBICIN HYDROCHLORIDE
     Dosage: 100 MILLIGRAM, QD
     Route: 042
     Dates: start: 20221205, end: 20221205
  5. METHYLPREDNISOLONE SODIUM SUCCINATE [Suspect]
     Active Substance: METHYLPREDNISOLONE SODIUM SUCCINATE
     Indication: Angioimmunoblastic T-cell lymphoma
     Dosage: 60 MILLIGRAM, QD
     Route: 042
     Dates: start: 20220915, end: 20220919
  6. METHYLPREDNISOLONE SODIUM SUCCINATE [Suspect]
     Active Substance: METHYLPREDNISOLONE SODIUM SUCCINATE
     Dosage: 60 MILLIGRAM, QD
     Route: 042
     Dates: start: 20221109, end: 20221113
  7. METHYLPREDNISOLONE SODIUM SUCCINATE [Suspect]
     Active Substance: METHYLPREDNISOLONE SODIUM SUCCINATE
     Dosage: 54 MILLIGRAM, QD
     Route: 042
     Dates: start: 20221205, end: 20221209
  8. CYCLOPHOSPHAMIDE [Suspect]
     Active Substance: CYCLOPHOSPHAMIDE
     Indication: Angioimmunoblastic T-cell lymphoma
     Dosage: 1100 MILLIGRAM, QD
     Route: 042
     Dates: start: 20220915, end: 20220915
  9. CYCLOPHOSPHAMIDE [Suspect]
     Active Substance: CYCLOPHOSPHAMIDE
     Dosage: 1100 MILLIGRAM, QD
     Route: 042
     Dates: start: 20221109, end: 20221109
  10. CYCLOPHOSPHAMIDE [Suspect]
     Active Substance: CYCLOPHOSPHAMIDE
     Dosage: 1100 MILLIGRAM, QD
     Route: 042
     Dates: start: 20221205, end: 20221205
  11. OMEPRAZOLE [Concomitant]
     Active Substance: OMEPRAZOLE
     Indication: Prophylaxis
     Dosage: 20 MILLIGRAM, BID(CAPSULE, COATED)
     Route: 048
     Dates: start: 20220915
  12. LEUCOGEN [Concomitant]
     Active Substance: LEUCOGEN
     Indication: Prophylaxis
     Dosage: 20 MILLIGRAM, TID
     Route: 048
     Dates: start: 20220915
  13. CEFACLOR [Concomitant]
     Active Substance: CEFACLOR
     Indication: Infection prophylaxis
     Dosage: 375 MILLIGRAM, BID
     Route: 048
     Dates: start: 20220915
  14. VALACYCLOVIR HYDROCHLORIDE [Concomitant]
     Active Substance: VALACYCLOVIR HYDROCHLORIDE
     Indication: Antiviral prophylaxis
     Dosage: 0.3 GRAM, BID
     Route: 048
     Dates: start: 20220915
  15. POTASSIUM CHLORIDE [Concomitant]
     Active Substance: POTASSIUM CHLORIDE
     Indication: Hypokalaemia
     Dosage: 1 GRAM, BID
     Route: 048
     Dates: start: 20220915
  16. PREDNISONE ACETATE [Concomitant]
     Active Substance: PREDNISONE ACETATE
     Indication: Prophylaxis
     Dosage: 10 MILLIGRAM, QD
     Route: 048
     Dates: start: 20220901
  17. AZACITIDINE [Concomitant]
     Active Substance: AZACITIDINE
     Indication: Lymphoma
     Dosage: 100 MILLIGRAM, QD
     Route: 048
     Dates: start: 20221128, end: 20221204
  18. TUCIDINOSTAT [Concomitant]
     Active Substance: TUCIDINOSTAT
     Indication: Lymphoma
     Dosage: 20 MILLIGRAM, TID
     Route: 048
     Dates: start: 20221205, end: 20221215
  19. METFORMIN HYDROCHLORIDE [Concomitant]
     Active Substance: METFORMIN HYDROCHLORIDE
     Dosage: 0.25 MILLIGRAM, BID
     Route: 048
  20. REBAMIPIDE [Concomitant]
     Active Substance: REBAMIPIDE
     Dosage: 100 MILLIGRAM, TID
     Route: 048
  21. ENTECAVIR [Concomitant]
     Active Substance: ENTECAVIR
     Dosage: 0.5 MILLIGRAM, QD
     Route: 048
  22. ACYCLOVIR [Concomitant]
     Active Substance: ACYCLOVIR
     Route: 048
  23. PENCICLOVIR [Concomitant]
     Active Substance: PENCICLOVIR
     Route: 050

REACTIONS (5)
  - Pneumonia [Recovered/Resolved]
  - White blood cell count decreased [Recovered/Resolved]
  - Lymphocyte count decreased [Recovered/Resolved]
  - Otitis media [Not Recovered/Not Resolved]
  - Off label use [Unknown]

NARRATIVE: CASE EVENT DATE: 20220915
